FAERS Safety Report 9863742 (Version 2)
Quarter: 2014Q3

REPORT INFORMATION
  Report Type: Spontaneous
  Country: US (occurrence: US)
  Receive Date: 20140203
  Receipt Date: 20140811
  Transmission Date: 20150326
  Serious: Yes (Hospitalization, Other)
  Sender: FDA-Public Use
  Company Number: US-009507513-1402USA000578

PATIENT
  Sex: Female

DRUGS (1)
  1. NUVARING [Suspect]
     Active Substance: ETHINYL ESTRADIOL\ETONOGESTREL
     Indication: CONTRACEPTION
     Dosage: UNK
     Route: 067
     Dates: start: 201202, end: 20120902

REACTIONS (9)
  - Sleep apnoea syndrome [Unknown]
  - Iron deficiency anaemia [Unknown]
  - Pulmonary embolism [Unknown]
  - Pain in extremity [Unknown]
  - Adenoidectomy [Unknown]
  - Dizziness [Unknown]
  - Hypertension [Unknown]
  - Asthma [Unknown]
  - Dyspnoea [Unknown]

NARRATIVE: CASE EVENT DATE: 20120831
